FAERS Safety Report 21763346 (Version 1)
Quarter: 2022Q4

REPORT INFORMATION
  Report Type: Report from Study
  Country: BE (occurrence: BE)
  Receive Date: 20221221
  Receipt Date: 20221221
  Transmission Date: 20230113
  Serious: Yes (Other)
  Sender: FDA-Public Use
  Company Number: BE-ABBVIE-4244563

PATIENT
  Sex: Male
  Weight: 95 kg

DRUGS (4)
  1. CARBIDOPA\LEVODOPA [Suspect]
     Active Substance: CARBIDOPA\LEVODOPA
     Indication: Parkinson^s disease
     Dosage: MD 12.0 ML; CD 4.2 ML/HR DURING 16 HOURS; ED 4.0 ML
     Route: 050
     Dates: start: 20220706, end: 20221219
  2. CARBIDOPA\LEVODOPA [Suspect]
     Active Substance: CARBIDOPA\LEVODOPA
     Route: 050
     Dates: start: 20200727
  3. CARBIDOPA\LEVODOPA [Suspect]
     Active Substance: CARBIDOPA\LEVODOPA
     Dosage: MD 9.0 ML; CD 4.0 ML/HR DURING 16 HOURS; ED 4.0 ML
     Route: 050
     Dates: start: 20221219
  4. CARBIDOPA\LEVODOPA [Suspect]
     Active Substance: CARBIDOPA\LEVODOPA
     Dosage: MD 9.0 ML; CD 4.0 ML/HR DURING 16 HOURS; ED 4.0 ML
     Route: 050
     Dates: start: 20221219, end: 20221219

REACTIONS (4)
  - Spinal fracture [Not Recovered/Not Resolved]
  - Weight decreased [Unknown]
  - Device issue [Unknown]
  - Dyskinesia [Unknown]
